FAERS Safety Report 24693168 (Version 1)
Quarter: 2024Q4

REPORT INFORMATION
  Report Type: Spontaneous
  Country: US (occurrence: US)
  Receive Date: 20241203
  Receipt Date: 20241203
  Transmission Date: 20250115
  Serious: Yes (Death, Hospitalization)
  Sender: FRESENIUS MEDICAL CARE
  Company Number: US-FMCRTG-FMC-2411-001505

PATIENT
  Age: 32 Year
  Sex: Male
  Weight: 85 kg

DRUGS (10)
  1. DELFLEX WITH DEXTROSE 1.5% LOW MAGNESIUM LOW CALCIUM [Suspect]
     Active Substance: CALCIUM CHLORIDE\DEXTROSE\MAGNESIUM CHLORIDE\SODIUM CHLORIDE\SODIUM LACTATE
     Indication: End stage renal disease
     Dosage: 7 TIMES A WEEK, CA 2.5 (MEQ/L), MG 0.5 (MEQ/L), DEXTROSE, EXCHANGES 6, FILL VOL 2500ML, LAST FILL VO
     Route: 033
  2. DELFLEX WITH DEXTROSE 2.5% LOW MAGNESIUM LOW CALCIUM [Suspect]
     Active Substance: CALCIUM CHLORIDE\DEXTROSE\MAGNESIUM CHLORIDE\SODIUM CHLORIDE\SODIUM LACTATE
     Indication: End stage renal disease
     Dosage: 7 TIMES A WEEK, CA 2.5 (MEQ/L), MG 0.5 (MEQ/L), DEXTROSE, EXCHANGES 6, FILL VOL 2500ML, LAST FILL VO
     Route: 033
  3. DELFLEX WITH DEXTROSE 4.25% LOW MAGNESIUM LOW CALCIUM [Suspect]
     Active Substance: CALCIUM CHLORIDE\DEXTROSE\MAGNESIUM CHLORIDE\SODIUM CHLORIDE\SODIUM LACTATE
     Indication: End stage renal disease
     Dosage: 7 TIMES A WEEK, CA 2.5 (MEQ/L), MG 0.5 (MEQ/L), DEXTROSE, EXCHANGES 6, FILL VOL 2500ML, LAST FILL VO
     Route: 033
  4. ACETAMINOPHEN [Concomitant]
     Active Substance: ACETAMINOPHEN
     Dosage: 960 MG ORAL EVERY 4 HRS
  5. CALCITRIOL [Concomitant]
     Active Substance: CALCITRIOL
     Dosage: 1.25 MG ORAL EVERY EVENING
  6. GENTAMICIN SULFATE [Concomitant]
     Active Substance: GENTAMICIN SULFATE
     Dosage: 1 G TOPICAL DAILY
  7. MELATONIN [Concomitant]
     Active Substance: MELATONIN
     Dosage: 5 MG ORAL NIGHTLY
  8. POTASSIUM CHLORIDE [Concomitant]
     Active Substance: POTASSIUM CHLORIDE
     Dosage: 20 MEQ/15 ML 20 MEQ ORAL EVENING
  9. QUETIAPINE FUMARATE [Concomitant]
     Active Substance: QUETIAPINE FUMARATE
     Dosage: 50 MG ORAL NIGHTLY
  10. SEVELAMER CARBONATE [Concomitant]
     Active Substance: SEVELAMER CARBONATE
     Dosage: 2.4 G ORAL 3 TIMES DAILY

REACTIONS (3)
  - Septic shock [Fatal]
  - Intestinal perforation [Not Recovered/Not Resolved]
  - Peritonitis bacterial [Not Recovered/Not Resolved]
